FAERS Safety Report 5778019-8 (Version None)
Quarter: 2008Q2

REPORT INFORMATION
  Report Type: 
  Country: None (occurrence: None)
  Receive Date: 20080619
  Receipt Date: 20080616
  Transmission Date: 20081010
  Serious: Yes (Hospitalization)
  Sender: FDA-Public Use
  Company Number: FR-BRISTOL-MYERS SQUIBB COMPANY-14232086

PATIENT
  Age: 58 Year
  Sex: Female

DRUGS (9)
  1. PRAVASTATIN SODIUM [Suspect]
     Dates: start: 20080305, end: 20080411
  2. LOVENOX [Suspect]
     Dates: start: 20080210, end: 20080411
  3. PERINDOPRIL ERBUMINE [Suspect]
     Dates: start: 20080201, end: 20080410
  4. FLUDEX [Suspect]
     Dosage: 1 DOSAGE FORM = 3(UNITS NOT SPECIFIED) DOSE VALUE: 3/D THEN 1/D FROM TIME TO TIME
     Dates: start: 20080201, end: 20080410
  5. OGASTORO [Suspect]
     Dates: start: 20080226, end: 20080410
  6. SEROPRAM [Suspect]
     Dosage: 1 DOSAGE FORM = 0.5(UNITS NOT SPECIFIED).
     Dates: start: 20080326, end: 20080411
  7. NICARDIPINE HCL [Concomitant]
     Dosage: 2 DOSAGE FORM = 2 CAPSULES.
  8. FORLAX [Concomitant]
     Dosage: 2 DOSAGE FORM = 2 SACHETS
  9. IMOVANE [Concomitant]

REACTIONS (2)
  - AGRANULOCYTOSIS [None]
  - LEUKOPENIA [None]
